FAERS Safety Report 9244868 (Version 7)
Quarter: 2014Q1

REPORT INFORMATION
  Report Type: Spontaneous
  Country: JP (occurrence: JP)
  Receive Date: 20130422
  Receipt Date: 20140207
  Transmission Date: 20141002
  Serious: Yes (Hospitalization)
  Sender: FDA-Public Use
  Company Number: JP-JNJFOC-20130409426

PATIENT
  Age: 38 Year
  Sex: Male
  Weight: 51 kg

DRUGS (8)
  1. TRAMCET [Suspect]
     Indication: BACK PAIN
     Route: 048
  2. TRAMCET [Suspect]
     Indication: BACK PAIN
     Dosage: #DOSAGES: 1, INTERVAL: 1 DAY
     Route: 048
     Dates: start: 20130415, end: 20130415
  3. LYRICA [Suspect]
     Indication: PRODUCT USED FOR UNKNOWN INDICATION
     Dosage: #DOSAGES: 1, INTERVAL: 1 DAY
     Route: 048
     Dates: start: 20130415, end: 20130415
  4. LYRICA [Suspect]
     Indication: PRODUCT USED FOR UNKNOWN INDICATION
     Route: 048
  5. JZOLOFT [Suspect]
     Indication: PRODUCT USED FOR UNKNOWN INDICATION
     Route: 048
  6. JZOLOFT [Suspect]
     Indication: PRODUCT USED FOR UNKNOWN INDICATION
     Dosage: #DOSAGES: 1, INTERVAL: 1 DAY
     Route: 048
     Dates: start: 20130415, end: 20130415
  7. MYONAL [Suspect]
     Indication: PRODUCT USED FOR UNKNOWN INDICATION
     Dosage: #DOSAGES: 1, INTERVAL: 1 DAY
     Route: 048
     Dates: start: 20130415, end: 20130415
  8. MYONAL [Suspect]
     Indication: PRODUCT USED FOR UNKNOWN INDICATION
     Route: 048

REACTIONS (6)
  - Suicide attempt [Recovering/Resolving]
  - Intentional overdose [Recovering/Resolving]
  - Depressed level of consciousness [Recovered/Resolved]
  - Tachycardia [Recovering/Resolving]
  - Nausea [Recovered/Resolved]
  - Vomiting [Recovered/Resolved]
